FAERS Safety Report 4685849-2 (Version None)
Quarter: 2005Q2

REPORT INFORMATION
  Report Type: 
  Country: None (occurrence: None)
  Receive Date: 20050606
  Receipt Date: 20050606
  Transmission Date: 20051028
  Serious: Yes (Other)
  Sender: FDA-Public Use
  Company Number: None

PATIENT
  Sex: Male
  Weight: 24.4942 kg

DRUGS (3)
  1. NIX [Suspect]
     Indication: LICE INFESTATION
     Dosage: APPLIED TO AFFECTED (HEAD) AREA FOR 5 MINUTES AND WASHED OUT - NIT-COMB PROVIDED WAS USED AS
     Dates: start: 20021101, end: 20040901
  2. RID MOUSSE [Suspect]
     Indication: LICE INFESTATION
     Dosage: APPLIED TO AFFECTED (HEAD) AREA FOR 5 MINUTES AND WASHED OUT - NIT-COMB PROVIDED WAS USED AS
     Dates: start: 20021101, end: 20040901
  3. EQUATE BRAND LICE TREATMENT [Suspect]
     Indication: LICE INFESTATION
     Dosage: APPLIED TO AFFECTED (HEAD) AREA FOR 5 MINUTES AND WASHED OUT - NIT-COMB PROVIDED WAS USED AS
     Dates: start: 20021101, end: 20040901

REACTIONS (7)
  - ABDOMINAL PAIN UPPER [None]
  - CRYING [None]
  - DRUG INEFFECTIVE [None]
  - DYSPNOEA [None]
  - FATIGUE [None]
  - LICE INFESTATION [None]
  - NON-HODGKIN'S LYMPHOMA [None]
